FAERS Safety Report 25350434 (Version 1)
Quarter: 2025Q2

REPORT INFORMATION
  Report Type: Spontaneous
  Country: US (occurrence: US)
  Receive Date: 20250523
  Receipt Date: 20250523
  Transmission Date: 20250716
  Serious: No
  Sender: NOVARTIS
  Company Number: US-002147023-NVSC2025US081364

PATIENT
  Age: 77 Year
  Sex: Male

DRUGS (2)
  1. LEQVIO [Suspect]
     Active Substance: INCLISIRAN SODIUM
     Indication: Hyperlipidaemia
     Route: 060
     Dates: start: 20241101
  2. LEQVIO [Suspect]
     Active Substance: INCLISIRAN SODIUM
     Route: 060
     Dates: end: 20250201

REACTIONS (5)
  - Low density lipoprotein decreased [Unknown]
  - Low density lipoprotein increased [Unknown]
  - Wrong technique in product usage process [Unknown]
  - Overdose [Unknown]
  - Off label use [Unknown]

NARRATIVE: CASE EVENT DATE: 20250401
